FAERS Safety Report 11849771 (Version 1)
Quarter: 2015Q4

REPORT INFORMATION
  Report Type: Spontaneous
  Country: NL (occurrence: NL)
  Receive Date: 20151218
  Receipt Date: 20151218
  Transmission Date: 20160305
  Serious: Yes (Hospitalization)
  Sender: FDA-Public Use
  Company Number: NL-TEVA-616560ACC

PATIENT
  Age: 50 Year
  Sex: Female
  Weight: 65 kg

DRUGS (6)
  1. CARBOPLATIN. [Suspect]
     Active Substance: CARBOPLATIN
     Indication: OVARIAN CANCER
     Dosage: 1 DF, 485 MG (= AUC 4), THIS SERIES OF COURSES WAS STARTED ON 04-JUN-2015
     Route: 042
     Dates: start: 2010, end: 20150730
  2. MOVICOLON POEDER VOOR DRANK IN SACHET [Concomitant]
     Dosage: ONCE DAILY ONE PIECE, EXTRA INFORMATION: AS REQUIRED ONCE DAILY ONE
     Route: 048
     Dates: start: 2013
  3. ESOMEPRAZOL CAPSULE MSR 40MG [Concomitant]
     Dosage: 40 MILLIGRAM DAILY; ONCE DAILY ONE PIECE
     Route: 048
     Dates: start: 2013
  4. METOCLOPRAMIDE TABLET 10MG [Concomitant]
     Active Substance: METOCLOPRAMIDE
     Dosage: AS REQUIRED 3 TIMES DAILY 10 MG
     Route: 048
     Dates: start: 2013, end: 20150730
  5. CALCI CHEW D3 KAUWTABLET  500MG/400IE [Concomitant]
     Dosage: 1 DOSAGE FORMS DAILY; ONCE DAILY ONE PIECE, EXTRA INFORMATION: ONCE DAILY 500 MG/400 UNITS
     Route: 048
     Dates: start: 2013
  6. DEXAMETHASON [Concomitant]
     Active Substance: DEXAMETHASONE
     Dosage: 10 MG BEFORE COURSE DUE TO ALLERGY
     Route: 065
     Dates: start: 2015, end: 20150730

REACTIONS (1)
  - Haemolytic anaemia [Recovered/Resolved]

NARRATIVE: CASE EVENT DATE: 20150709
